FAERS Safety Report 9523076 (Version 1)
Quarter: 2013Q3

REPORT INFORMATION
  Report Type: Spontaneous
  Country: US (occurrence: US)
  Receive Date: 20130913
  Receipt Date: 20130913
  Transmission Date: 20140515
  Serious: No
  Sender: FDA-Public Use
  Company Number: US-PFIZER INC-2013264281

PATIENT
  Age: 73 Year
  Sex: Female
  Weight: 90.7 kg

DRUGS (2)
  1. LYRICA [Suspect]
     Indication: NEUROPATHY PERIPHERAL
     Dosage: 200 MG, 3X/DAY
  2. ADVAIR [Concomitant]
     Indication: PULMONARY FIBROSIS
     Dosage: UNK, 2X/DAY

REACTIONS (3)
  - Malaise [Unknown]
  - Myalgia [Unknown]
  - Thinking abnormal [Unknown]
